FAERS Safety Report 22014744 (Version 1)
Quarter: 2023Q1

REPORT INFORMATION
  Report Type: Spontaneous
  Country: IT (occurrence: None)
  Receive Date: 20230221
  Receipt Date: 20230221
  Transmission Date: 20230417
  Serious: Yes (Other)
  Sender: FDA-Public Use
  Company Number: None

PATIENT
  Age: 54 Year
  Sex: Female

DRUGS (2)
  1. EPIRUBICIN [Suspect]
     Active Substance: EPIRUBICIN
     Indication: Breast cancer
     Route: 042
     Dates: start: 20221117
  2. CYCLOPHOSPHAMIDE [Suspect]
     Active Substance: CYCLOPHOSPHAMIDE
     Indication: Breast cancer
     Route: 042
     Dates: start: 20221117

REACTIONS (3)
  - Hyperamylasaemia [Not Recovered/Not Resolved]
  - Pancreatitis acute [Not Recovered/Not Resolved]
  - Hyperlipasaemia [Not Recovered/Not Resolved]

NARRATIVE: CASE EVENT DATE: 20221124
